FAERS Safety Report 17785397 (Version 2)
Quarter: 2020Q3

REPORT INFORMATION
  Report Type: Report from Study
  Country: None (occurrence: US)
  Receive Date: 20200514
  Receipt Date: 20200713
  Transmission Date: 20201102
  Serious: No
  Sender: FDA-Public Use
  Company Number: US-BIOVITRUM-2020US1490

PATIENT
  Age: 52 Year
  Sex: Female

DRUGS (1)
  1. KINERET [Suspect]
     Active Substance: ANAKINRA
     Indication: PERICARDIAL DISEASE
     Route: 058
     Dates: start: 20190425

REACTIONS (8)
  - Pain in extremity [Unknown]
  - Product dose omission issue [Unknown]
  - Fatigue [Unknown]
  - Oropharyngeal pain [Unknown]
  - Off label use [Unknown]
  - Nasal congestion [Unknown]
  - Chest discomfort [Unknown]
  - Injection site pain [Unknown]

NARRATIVE: CASE EVENT DATE: 20190524
